FAERS Safety Report 24735162 (Version 1)
Quarter: 2024Q4

REPORT INFORMATION
  Report Type: Spontaneous
  Country: US (occurrence: US)
  Receive Date: 20241215
  Receipt Date: 20241215
  Transmission Date: 20250115
  Serious: No
  Sender: SANDOZ
  Company Number: US-SANDOZ-SDZ2024US101983

PATIENT

DRUGS (2)
  1. LATANOPROST [Suspect]
     Active Substance: LATANOPROST
     Indication: Product used for unknown indication
     Dosage: 0.005% O/S
     Route: 065
  2. TRIFLURIDINE [Suspect]
     Active Substance: TRIFLURIDINE
     Indication: Product used for unknown indication
     Dosage: 1 % DRP 7.5 ML
     Route: 065

REACTIONS (2)
  - Product storage error [Unknown]
  - Product temperature excursion issue [Unknown]
